FAERS Safety Report 11591453 (Version 1)
Quarter: 2015Q4

REPORT INFORMATION
  Report Type: Spontaneous
  Country: US (occurrence: US)
  Receive Date: 20151005
  Receipt Date: 20151005
  Transmission Date: 20160304
  Serious: No
  Sender: FDA-Public Use
  Company Number: US-NOVEN PHARMACEUTICALS, INC.-14US010176

PATIENT

DRUGS (1)
  1. COMBIPATCH [Suspect]
     Active Substance: ESTRADIOL\NORETHINDRONE ACETATE
     Indication: HOT FLUSH
     Dosage: 0.05MG/0.25MG/DAY, TWICE WEEKLY
     Route: 062
     Dates: start: 2013

REACTIONS (5)
  - Application site burn [Not Recovered/Not Resolved]
  - Drug dose omission [Not Recovered/Not Resolved]
  - Application site pain [Not Recovered/Not Resolved]
  - Incorrect drug administration duration [Recovered/Resolved]
  - Application site urticaria [Not Recovered/Not Resolved]

NARRATIVE: CASE EVENT DATE: 201408
